FAERS Safety Report 4472151-7 (Version None)
Quarter: 2004Q4

REPORT INFORMATION
  Report Type: 
  Country: None (occurrence: None)
  Receive Date: 20041008
  Receipt Date: 20040924
  Transmission Date: 20050328
  Serious: Yes (Other)
  Sender: FDA-Public Use
  Company Number: 200417791BWH

PATIENT
  Age: 61 Year
  Sex: Male
  Weight: 96.1626 kg

DRUGS (6)
  1. LEVITRA [Suspect]
     Indication: ERECTILE DYSFUNCTION
     Dosage: 20 MG, QD, ORAL
     Route: 048
  2. MYSOLINE [Suspect]
     Indication: PETIT MAL EPILEPSY
     Dosage: 1250 MG, TOTAL DAILY
     Dates: start: 19680101
  3. LOMOTIL [Concomitant]
  4. GUAIFENESIN WITH DECONGESTIONAN [Concomitant]
  5. CAFFEINE [Concomitant]
  6. ASPIRIN [Concomitant]

REACTIONS (6)
  - CONVULSION [None]
  - DIARRHOEA [None]
  - FALL [None]
  - HEAD INJURY [None]
  - NEOPLASM [None]
  - OPEN WOUND [None]
